FAERS Safety Report 23937108 (Version 1)
Quarter: 2024Q2

REPORT INFORMATION
  Report Type: Spontaneous
  Country: AU (occurrence: AU)
  Receive Date: 20240604
  Receipt Date: 20240604
  Transmission Date: 20240716
  Serious: Yes (Other)
  Sender: FDA-Public Use
  Company Number: AU-UCBSA-2024027264

PATIENT
  Sex: Female

DRUGS (6)
  1. LEVETIRACETAM [Suspect]
     Active Substance: LEVETIRACETAM
     Indication: Temporal lobe epilepsy
     Dosage: 750 MILLIGRAM, 2X/DAY (BID)
  2. LEVETIRACETAM [Suspect]
     Active Substance: LEVETIRACETAM
     Indication: Partial seizures
     Dosage: UNK (DOWN TITRATED)
  3. BRIVARACETAM [Suspect]
     Active Substance: BRIVARACETAM
     Indication: Temporal lobe epilepsy
     Dosage: 50 MILLIGRAM, ONCE DAILY (QD)
     Dates: start: 202404
  4. BRIVARACETAM [Suspect]
     Active Substance: BRIVARACETAM
     Indication: Partial seizures
  5. LAMOTRIGINE [Suspect]
     Active Substance: LAMOTRIGINE
     Indication: Temporal lobe epilepsy
     Dosage: UNK
     Dates: start: 2023
  6. LAMOTRIGINE [Suspect]
     Active Substance: LAMOTRIGINE
     Indication: Partial seizures
     Dosage: 150 MILLIGRAM, 2X/DAY (BID)

REACTIONS (20)
  - Seizure [Unknown]
  - Suicidal ideation [Unknown]
  - Skin lesion [Unknown]
  - Amnesia [Unknown]
  - Confusional state [Unknown]
  - Fatigue [Unknown]
  - Mood swings [Unknown]
  - Anxiety [Unknown]
  - Depression [Unknown]
  - Feeling drunk [Unknown]
  - Balance disorder [Unknown]
  - Disturbance in attention [Unknown]
  - Vision blurred [Unknown]
  - Dizziness [Unknown]
  - Asthenia [Unknown]
  - Hypoaesthesia [Unknown]
  - Tremor [Unknown]
  - Joint noise [Unknown]
  - Dry skin [Unknown]
  - Pain [Unknown]

NARRATIVE: CASE EVENT DATE: 20240401
